FAERS Safety Report 8351416-2 (Version None)
Quarter: 2012Q2

REPORT INFORMATION
  Report Type: 
  Country: None (occurrence: None)
  Receive Date: 20120510
  Receipt Date: 20120503
  Transmission Date: 20120825
  Serious: Yes (Hospitalization)
  Sender: FDA-Public Use
  Company Number: DE-TEVA-336755GER

PATIENT
  Sex: Female
  Weight: 72 kg

DRUGS (7)
  1. CARBOPLATIN [Suspect]
     Indication: BREAST CANCER
     Dates: start: 20120315, end: 20120425
  2. TRASTUZUMAB [Suspect]
     Indication: BREAST CANCER
     Route: 042
     Dates: start: 20120315, end: 20120425
  3. GRANOCYTE [Concomitant]
     Dates: start: 20120426, end: 20120429
  4. DOXORUBICIN HCL [Suspect]
     Indication: BREAST CANCER
     Route: 042
     Dates: start: 20120315, end: 20120425
  5. PACLITAXEL [Suspect]
     Indication: BREAST CANCER
     Dates: start: 20120315, end: 20120425
  6. CIPROFLOXACIN [Concomitant]
     Dosage: 1000 MILLIGRAM;
     Dates: start: 20120419, end: 20120420
  7. LAPATINIB [Suspect]
     Indication: BREAST CANCER
     Dosage: 750 MILLIGRAM;
     Route: 048
     Dates: start: 20120315, end: 20120413

REACTIONS (1)
  - STOMATITIS [None]
